FAERS Safety Report 15906334 (Version 1)
Quarter: 2019Q1

REPORT INFORMATION
  Report Type: Report from Study
  Country: CA (occurrence: CA)
  Receive Date: 20190204
  Receipt Date: 20190204
  Transmission Date: 20190417
  Serious: Yes (Death)
  Sender: FDA-Public Use
  Company Number: CA-TAKEDA-2019TJP000242

PATIENT
  Age: 70 Year
  Sex: Male

DRUGS (2)
  1. LEUPRORELIN [Suspect]
     Active Substance: LEUPROLIDE ACETATE
     Indication: PROSTATE CANCER
     Dosage: 22.5 MG, Q3MONTHS
     Route: 058
     Dates: end: 20180917
  2. COLCHICINE. [Suspect]
     Active Substance: COLCHICINE
     Indication: PRODUCT USED FOR UNKNOWN INDICATION
     Dosage: UNK

REACTIONS (3)
  - Renal impairment [Unknown]
  - Death [Fatal]
  - Asthenia [Unknown]

NARRATIVE: CASE EVENT DATE: 20181227
